FAERS Safety Report 19453931 (Version 1)
Quarter: 2021Q2

REPORT INFORMATION
  Report Type: Spontaneous
  Country: CA (occurrence: CA)
  Receive Date: 20210623
  Receipt Date: 20210623
  Transmission Date: 20210717
  Serious: Yes (Other)
  Sender: FDA-Public Use
  Company Number: CA-OTSUKA-2021_021157

PATIENT
  Sex: Male

DRUGS (1)
  1. JINARC [Suspect]
     Active Substance: TOLVAPTAN
     Indication: CONGENITAL CYSTIC KIDNEY DISEASE
     Dosage: UNK
     Route: 048

REACTIONS (1)
  - Fluid overload [Unknown]
